FAERS Safety Report 16936636 (Version 1)
Quarter: 2019Q4

REPORT INFORMATION
  Report Type: Spontaneous
  Country: GB (occurrence: GB)
  Receive Date: 20191018
  Receipt Date: 20191018
  Transmission Date: 20200122
  Serious: Yes (Other)
  Sender: FDA-Public Use
  Company Number: GB-MYLANLABS-2019M1097861

PATIENT
  Age: 68 Year
  Sex: Male
  Weight: 60 kg

DRUGS (7)
  1. LANSOPRAZOLE. [Concomitant]
     Active Substance: LANSOPRAZOLE
     Dosage: 30 MILLIGRAM, QD
     Route: 048
  2. ATORVASTATIN [Concomitant]
     Active Substance: ATORVASTATIN
     Dosage: 20 MILLIGRAM, QD (NOCTE)
     Route: 048
  3. CINNARIZINE [Concomitant]
     Active Substance: CINNARIZINE
     Dosage: 30 MILLIGRAM, PRN (THREE TIMES DAILY)
     Route: 048
  4. LACRI LUBE [Concomitant]
     Dosage: TO BOTH EYES AT NIGHT
     Route: 050
  5. TAMSULOSIN [Suspect]
     Active Substance: TAMSULOSIN
     Indication: BENIGN PROSTATIC HYPERPLASIA
     Dosage: 400 MICROGRAM (NOCTE), QD
     Route: 048
     Dates: start: 20180924, end: 20181024
  6. DERMOL                             /01330701/ [Concomitant]
     Dosage: UNK , PRN
     Route: 061
  7. FINASTERIDE. [Concomitant]
     Active Substance: FINASTERIDE
     Dosage: 5 MILLIGRAM, QD
     Route: 048

REACTIONS (1)
  - Dyspepsia [Recovered/Resolved]

NARRATIVE: CASE EVENT DATE: 20181010
